FAERS Safety Report 10306680 (Version 6)
Quarter: 2022Q2

REPORT INFORMATION
  Report Type: Spontaneous
  Country: US (occurrence: US)
  Receive Date: 20140715
  Receipt Date: 20220513
  Transmission Date: 20220721
  Serious: No
  Sender: FDA-Public Use
  Company Number: US-PFIZER INC-2014196056

PATIENT
  Age: 33 Year
  Sex: Female

DRUGS (2)
  1. RELPAX [Suspect]
     Active Substance: ELETRIPTAN HYDROBROMIDE
     Indication: Headache
     Dosage: 40 MG, AS NEEDED (MAY REPEAT 2ND DOSE 2 HRS. LATER, NO MORE THAN 2 TABS DAILY)
     Route: 048
  2. RELPAX [Suspect]
     Active Substance: ELETRIPTAN HYDROBROMIDE
     Indication: Migraine
     Dosage: 1 TABLET ONCE, PRN, MAY REPEAT DOSE ONCE IN 2 HRS, MAX 2 PER DAY
     Route: 048

REACTIONS (3)
  - Nervous system disorder [Unknown]
  - Product dispensing issue [Unknown]
  - Off label use [Unknown]
